FAERS Safety Report 17000932 (Version 4)
Quarter: 2020Q4

REPORT INFORMATION
  Report Type: Spontaneous
  Country: US (occurrence: US)
  Receive Date: 20191106
  Receipt Date: 20201224
  Transmission Date: 20210113
  Serious: No
  Sender: FDA-Public Use
  Company Number: US-SA-2019SA300114

PATIENT

DRUGS (2)
  1. DUPIXENT [Suspect]
     Active Substance: DUPILUMAB
     Indication: PSORIASIS
  2. DUPIXENT [Suspect]
     Active Substance: DUPILUMAB
     Indication: DERMATITIS ATOPIC
     Dosage: 300 MG, QOW
     Route: 058
     Dates: start: 20191002

REACTIONS (8)
  - Visual impairment [Unknown]
  - Cold sweat [Unknown]
  - Injection site warmth [Recovered/Resolved]
  - Dizziness [Unknown]
  - Nasal polyps [Not Recovered/Not Resolved]
  - Facial pain [Unknown]
  - Product use in unapproved indication [Unknown]
  - Injection site pain [Recovered/Resolved]

NARRATIVE: CASE EVENT DATE: 201910
